FAERS Safety Report 14819390 (Version 1)
Quarter: 2018Q2

REPORT INFORMATION
  Report Type: Spontaneous
  Country: US (occurrence: US)
  Receive Date: 20180420
  Receipt Date: 20180420
  Transmission Date: 20180711
  Serious: Yes (Hospitalization)
  Sender: FDA-Public Use
  Company Number: None

PATIENT
  Age: 58 Year
  Sex: Female

DRUGS (11)
  1. ALPRAZOLAM. [Concomitant]
     Active Substance: ALPRAZOLAM
  2. PROCHLORPER [Concomitant]
  3. CITALOPRAM [Concomitant]
     Active Substance: CITALOPRAM HYDROBROMIDE
  4. DEXTROAMPHET [Concomitant]
  5. LOSARTAN/HCT [Concomitant]
     Active Substance: HYDROCHLOROTHIAZIDE\LOSARTAN POTASSIUM
  6. IBRANCE [Suspect]
     Active Substance: PALBOCICLIB
     Indication: NEOPLASM MALIGNANT
     Dosage: 1 CAPSULE QD X 21 DAYS ON AND 7 DAYS OFF ORAL
     Route: 048
     Dates: start: 20161003
  7. CARVEDILOL. [Concomitant]
     Active Substance: CARVEDILOL
  8. ONDANSETRON [Concomitant]
     Active Substance: ONDANSETRON
  9. VITAMIN D [Concomitant]
     Active Substance: CHOLECALCIFEROL
  10. AMLODIPINE [Concomitant]
     Active Substance: AMLODIPINE BESYLATE
  11. FASLODEX [Concomitant]
     Active Substance: FULVESTRANT

REACTIONS (1)
  - Malaise [None]

NARRATIVE: CASE EVENT DATE: 201803
